FAERS Safety Report 5476325-8 (Version None)
Quarter: 2007Q4

REPORT INFORMATION
  Report Type: 
  Country: None (occurrence: None)
  Receive Date: 20071003
  Receipt Date: 20070925
  Transmission Date: 20080405
  Serious: Yes (Death, Hospitalization)
  Sender: FDA-Public Use
  Company Number: US-PFIZER INC-2007036444

PATIENT
  Sex: Male
  Weight: 93 kg

DRUGS (2)
  1. BEXTRA [Suspect]
     Indication: PAIN
     Route: 048
     Dates: start: 20030513, end: 20040122
  2. CELEBREX [Suspect]

REACTIONS (4)
  - ABDOMINAL PAIN UPPER [None]
  - CEREBROVASCULAR ACCIDENT [None]
  - CORONARY ARTERY DISEASE [None]
  - MYOCARDIAL INFARCTION [None]
